FAERS Safety Report 10593827 (Version 4)
Quarter: 2015Q3

REPORT INFORMATION
  Report Type: Spontaneous
  Country: US (occurrence: US)
  Receive Date: 20141119
  Receipt Date: 20150715
  Transmission Date: 20151125
  Serious: Yes (Other)
  Sender: FDA-Public Use
  Company Number: US-GLAXOSMITHKLINE-US2014GSK022935

PATIENT
  Sex: Female

DRUGS (12)
  1. VITAMIN B12 [Concomitant]
     Active Substance: CYANOCOBALAMIN
  2. LAMICTAL [Suspect]
     Active Substance: LAMOTRIGINE
     Indication: EPILEPSY
     Dosage: UNK, U
     Route: 048
     Dates: start: 2004
  3. TOPAMAX [Concomitant]
     Active Substance: TOPIRAMATE
  4. CALCIUM [Concomitant]
     Active Substance: CALCIUM
  5. LETROZOLE. [Concomitant]
     Active Substance: LETROZOLE
  6. IRON [Concomitant]
     Active Substance: IRON
  7. VITAMIN D3 [Concomitant]
     Active Substance: CHOLECALCIFEROL
  8. LAMICTAL [Suspect]
     Active Substance: LAMOTRIGINE
     Indication: BRAIN NEOPLASM
  9. VITAMIN C [Concomitant]
     Active Substance: ASCORBIC ACID
  10. KEPPRA [Concomitant]
     Active Substance: LEVETIRACETAM
  11. AMOXICILLIN. [Concomitant]
     Active Substance: AMOXICILLIN
  12. ALENDRONATE [Concomitant]
     Active Substance: ALENDRONATE SODIUM

REACTIONS (3)
  - Breast neoplasm [Unknown]
  - Seizure [Recovering/Resolving]
  - Tooth fracture [Recovering/Resolving]

NARRATIVE: CASE EVENT DATE: 2004
